FAERS Safety Report 18811461 (Version 3)
Quarter: 2025Q3

REPORT INFORMATION
  Report Type: Spontaneous
  Country: EU (occurrence: EU)
  Receive Date: 20210130
  Receipt Date: 20250806
  Transmission Date: 20251020
  Serious: Yes (Hospitalization)
  Sender: AUROBINDO
  Company Number: EU-SUN PHARMACEUTICAL INDUSTRIES LTD-2021R1-276211

PATIENT
  Age: 42 Year
  Sex: Male

DRUGS (6)
  1. GABAPENTIN [Suspect]
     Active Substance: GABAPENTIN
     Indication: Pain
     Dosage: 300 MILLIGRAM, 3 TIMES A DAY
     Route: 065
  2. FENTANYL [Suspect]
     Active Substance: FENTANYL
     Indication: Pain
     Dosage: 1 DOSAGE FORM, FOUR TIMES/DAY
     Route: 065
  3. FENTANYL [Suspect]
     Active Substance: FENTANYL
     Route: 065
  4. OXYCODONE [Suspect]
     Active Substance: OXYCODONE
     Indication: Pain
     Dosage: 100 MILLIGRAM, 3 TIMES A DAY
     Route: 065
  5. OXYCODONE [Suspect]
     Active Substance: OXYCODONE
     Dosage: 1 DOSAGE FORM, TWO TIMES A DAY
     Route: 065
  6. OXYCODONE [Suspect]
     Active Substance: OXYCODONE
     Dosage: 80 MILLIGRAM, 3 TIMES A DAY
     Route: 065

REACTIONS (2)
  - Therapeutic response decreased [Unknown]
  - Constipation [Unknown]
